FAERS Safety Report 7382176-X (Version None)
Quarter: 2011Q1

REPORT INFORMATION
  Report Type: 
  Country: None (occurrence: None)
  Receive Date: 20110329
  Receipt Date: 20110323
  Transmission Date: 20110831
  Serious: Yes (Hospitalization)
  Sender: FDA-Public Use
  Company Number: SE-ABBOTT-11P-150-0714049-00

PATIENT
  Sex: Male

DRUGS (6)
  1. CYMBALTA [Concomitant]
     Indication: PRODUCT USED FOR UNKNOWN INDICATION
  2. OXYCONTIN [Concomitant]
     Indication: PRODUCT USED FOR UNKNOWN INDICATION
  3. TRAMADOL [Concomitant]
     Indication: PRODUCT USED FOR UNKNOWN INDICATION
     Dosage: 50-150 MG
  4. HUMIRA [Suspect]
     Indication: CROHN'S DISEASE
     Dosage: 120 MG EOW + 80 MG EOW
  5. LYRICA [Concomitant]
     Indication: PRODUCT USED FOR UNKNOWN INDICATION
     Dosage: 5 X 150 MG
  6. SIMVASTATIN [Concomitant]
     Indication: PRODUCT USED FOR UNKNOWN INDICATION

REACTIONS (9)
  - BLOOD AMYLASE INCREASED [None]
  - DIARRHOEA [None]
  - PANCREATIC DISORDER [None]
  - BLOOD TRIGLYCERIDES INCREASED [None]
  - VOMITING [None]
  - OVERDOSE [None]
  - ABDOMINAL PAIN [None]
  - PANCREAS INFECTION [None]
  - TRANSAMINASES INCREASED [None]
